FAERS Safety Report 10958754 (Version 1)
Quarter: 2015Q1

REPORT INFORMATION
  Report Type: Spontaneous
  Country: RU (occurrence: RU)
  Receive Date: 20150326
  Receipt Date: 20150326
  Transmission Date: 20150721
  Serious: Yes (Other)
  Sender: FDA-Public Use
  Company Number: RU-BAYER-2015-060763

PATIENT
  Age: 32 Year
  Sex: Female

DRUGS (1)
  1. QLAIRA [Suspect]
     Active Substance: DIENOGEST\ESTRADIOL VALERATE
     Dosage: UNK
     Dates: start: 2013

REACTIONS (4)
  - Ureteral spasm [None]
  - Fallopian tube cyst [None]
  - Salpingitis [None]
  - Increased appetite [None]
